FAERS Safety Report 23941739 (Version 3)
Quarter: 2024Q3

REPORT INFORMATION
  Report Type: Spontaneous
  Country: US (occurrence: US)
  Receive Date: 20240605
  Receipt Date: 20240709
  Transmission Date: 20241016
  Serious: Yes (Hospitalization, Other)
  Sender: BRISTOL MYERS SQUIBB
  Company Number: US-BRISTOL-MYERS SQUIBB COMPANY-2024-088849

PATIENT
  Age: 69 Year
  Sex: Male

DRUGS (5)
  1. POMALYST [Suspect]
     Active Substance: POMALIDOMIDE
     Indication: Plasma cell myeloma
     Dosage: FREQUENCY: TAKE 1 CAPSULE BY MOUTH EVERY DAY FOR 21 DAYS, FOLLOWED BY 7 DAYS REST
     Route: 048
  2. POMALYST [Suspect]
     Active Substance: POMALIDOMIDE
     Indication: Plasma cell myeloma recurrent
  3. XPOVIO [Concomitant]
     Active Substance: SELINEXOR
     Indication: Product used for unknown indication
  4. LOSARTAN [Concomitant]
     Active Substance: LOSARTAN
     Indication: Blood pressure abnormal
  5. CALCIUM [Concomitant]
     Active Substance: CALCIUM
     Indication: Product used for unknown indication

REACTIONS (12)
  - Plasma cell myeloma recurrent [Not Recovered/Not Resolved]
  - Pain [Not Recovered/Not Resolved]
  - Fatigue [Not Recovered/Not Resolved]
  - Decreased appetite [Not Recovered/Not Resolved]
  - Dysgeusia [Not Recovered/Not Resolved]
  - Blood potassium increased [Recovered/Resolved]
  - Blood calcium decreased [Recovered/Resolved]
  - Neutrophil count decreased [Recovered/Resolved]
  - Hypotension [Recovered/Resolved]
  - Balance disorder [Recovered/Resolved]
  - Feeling abnormal [Recovered/Resolved]
  - Neuropathy peripheral [Recovered/Resolved]
